FAERS Safety Report 10022000 (Version 1)
Quarter: 2014Q1

REPORT INFORMATION
  Report Type: Spontaneous
  Country: BG (occurrence: BG)
  Receive Date: 20140319
  Receipt Date: 20140319
  Transmission Date: 20141002
  Serious: Yes (Hospitalization, Other)
  Sender: FDA-Public Use
  Company Number: BG-009507513-1403BGR008675

PATIENT
  Age: 31 Year
  Sex: Female

DRUGS (5)
  1. VICTRELIS [Suspect]
     Indication: CHRONIC HEPATITIS C
     Dosage: FORMULATION: HARD CAPSULES
     Route: 048
  2. PEGINTRON [Suspect]
     Indication: CHRONIC HEPATITIS C
     Dosage: UNK UNK, QW
     Route: 058
  3. PEGINTRON [Suspect]
     Dosage: DOSE DECREASED, QW
     Route: 058
  4. REBETOL [Suspect]
     Indication: CHRONIC HEPATITIS
     Dosage: HARD CAPSULES
     Route: 048
  5. REBETOL [Suspect]
     Dosage: HARD CAPSULES
     Route: 048

REACTIONS (4)
  - Transfusion [Unknown]
  - Anaemia [Recovered/Resolved]
  - Neutropenia [Recovered/Resolved]
  - Thrombocytopenia [Recovered/Resolved]
